FAERS Safety Report 16883405 (Version 1)
Quarter: 2019Q4

REPORT INFORMATION
  Report Type: Spontaneous
  Country: US (occurrence: US)
  Receive Date: 20191004
  Receipt Date: 20191004
  Transmission Date: 20200122
  Serious: No
  Sender: FDA-Public Use
  Company Number: US-JNJFOC-20191000112

PATIENT
  Sex: Female
  Weight: 95.34 kg

DRUGS (1)
  1. TYLENOL [Suspect]
     Active Substance: ACETAMINOPHEN
     Indication: HEADACHE
     Dosage: 2 CAPLETS 4/5 TIMES A DAY
     Route: 048

REACTIONS (1)
  - Inappropriate schedule of product administration [Unknown]
